FAERS Safety Report 24023755 (Version 2)
Quarter: 2024Q3

REPORT INFORMATION
  Report Type: Report from Study
  Country: RO (occurrence: RO)
  Receive Date: 20240627
  Receipt Date: 20240710
  Transmission Date: 20241017
  Serious: No
  Sender: ROCHE
  Company Number: RO-ROCHE-3393397

PATIENT
  Age: 58 Year
  Sex: Female
  Weight: 80.0 kg

DRUGS (1)
  1. PHESGO [Suspect]
     Active Substance: HYALURONIDASE-ZZXF\PERTUZUMAB\TRASTUZUMAB
     Indication: Breast cancer
     Dosage: 600/600 MG ?FIRST ON 23/MAY,?ON 13/JUN, AND 04/JUL, AND ON 25TH JUL
     Route: 065

REACTIONS (5)
  - White blood cell count increased [Unknown]
  - Haemoglobin decreased [Unknown]
  - Malaise [Unknown]
  - Dizziness [Unknown]
  - Dysgeusia [Unknown]
